FAERS Safety Report 19754747 (Version 4)
Quarter: 2021Q3

REPORT INFORMATION
  Report Type: Report from Study
  Country: RS (occurrence: RS)
  Receive Date: 20210827
  Receipt Date: 20210930
  Transmission Date: 20211014
  Serious: No
  Sender: FDA-Public Use
  Company Number: RS-EMD SERONO-9260462

PATIENT
  Age: 38 Year
  Sex: Male

DRUGS (1)
  1. REBIF [Suspect]
     Active Substance: INTERFERON BETA-1A
     Indication: RELAPSING-REMITTING MULTIPLE SCLEROSIS
     Route: 058
     Dates: start: 20210804

REACTIONS (9)
  - Deafness transitory [Recovered/Resolved]
  - Nasal inflammation [Unknown]
  - Middle ear inflammation [Unknown]
  - Multiple sclerosis relapse [Unknown]
  - Ear discomfort [Unknown]
  - Pyrexia [Unknown]
  - Pharyngeal inflammation [Unknown]
  - Ear pain [Unknown]
  - Balance disorder [Recovered/Resolved]

NARRATIVE: CASE EVENT DATE: 2021
